FAERS Safety Report 5450500-0 (Version None)
Quarter: 2007Q3

REPORT INFORMATION
  Report Type: 
  Country: None (occurrence: None)
  Receive Date: 20070912
  Receipt Date: 20070904
  Transmission Date: 20080115
  Serious: No
  Sender: FDA-Public Use
  Company Number: US-BOEHRINGER INGELHEIM PHARMACEUTICALS, INC.-2007-BP-20450BP

PATIENT
  Sex: Female

DRUGS (10)
  1. SPIRIVA [Suspect]
     Indication: CHRONIC OBSTRUCTIVE PULMONARY DISEASE
     Route: 055
     Dates: start: 20060901
  2. SPIRIVA [Suspect]
     Indication: ASTHMA
  3. FOSAMAX [Concomitant]
  4. PRAVACHOL [Concomitant]
     Indication: BLOOD CHOLESTEROL INCREASED
  5. METFORMIN HCL [Concomitant]
     Indication: DIABETES MELLITUS
  6. GLUCOSIDE [Concomitant]
     Indication: DIABETES MELLITUS
  7. ZETIA [Concomitant]
     Indication: BLOOD CHOLESTEROL INCREASED
  8. ACTOS [Concomitant]
     Indication: DIABETES MELLITUS
  9. ALBUTEROL [Concomitant]
     Indication: CHRONIC OBSTRUCTIVE PULMONARY DISEASE
  10. AZMACORT [Concomitant]
     Indication: ASTHMA

REACTIONS (1)
  - SKIN LACERATION [None]
